FAERS Safety Report 6345594-4 (Version None)
Quarter: 2009Q3

REPORT INFORMATION
  Report Type: 
  Country: None (occurrence: None)
  Receive Date: 20090821
  Receipt Date: 20090702
  Transmission Date: 20100115
  Serious: Yes (Hospitalization)
  Sender: FDA-Public Use
  Company Number: 8048520

PATIENT
  Age: 35 Year
  Sex: Female
  Weight: 70.45 kg

DRUGS (1)
  1. CIMZIA [Suspect]

REACTIONS (1)
  - CROHN'S DISEASE [None]
